FAERS Safety Report 8983845 (Version 2)
Quarter: 2013Q1

REPORT INFORMATION
  Report Type: Spontaneous
  Country: JP (occurrence: JP)
  Receive Date: 20121224
  Receipt Date: 20130104
  Transmission Date: 20140127
  Serious: Yes (Death)
  Sender: FDA-Public Use
  Company Number: JP-ROCHE-1170831

PATIENT
  Sex: Female

DRUGS (1)
  1. AVASTIN [Suspect]
     Indication: BREAST CANCER
     Route: 041
     Dates: start: 20121207, end: 20121207

REACTIONS (1)
  - Cardiac failure [Fatal]
